FAERS Safety Report 18677464 (Version 3)
Quarter: 2021Q1

REPORT INFORMATION
  Report Type: Spontaneous
  Country: JP (occurrence: JP)
  Receive Date: 20201229
  Receipt Date: 20210122
  Transmission Date: 20210419
  Serious: Yes (Other)
  Sender: FDA-Public Use
  Company Number: JP-GLAXOSMITHKLINE-JP2020JPN255329

PATIENT
  Age: 16 Year
  Sex: Male

DRUGS (53)
  1. GRANISETRON [Suspect]
     Active Substance: GRANISETRON
     Dosage: UNK
  2. ACETAMINOPHEN. [Suspect]
     Active Substance: ACETAMINOPHEN
     Dosage: UNK
  3. FUROSEMIDE. [Suspect]
     Active Substance: FUROSEMIDE
     Dosage: UNK
  4. DAUNORUBICIN HYDROCHLORIDE. [Suspect]
     Active Substance: DAUNORUBICIN HYDROCHLORIDE
     Indication: ACUTE MYELOMONOCYTIC LEUKAEMIA
     Dosage: UNK
  5. CYTARABINE. [Suspect]
     Active Substance: CYTARABINE
     Indication: LEUKAEMIA RECURRENT
     Dosage: UNK
  6. GEMTUZUMAB OZOGAMICIN [Suspect]
     Active Substance: GEMTUZUMAB OZOGAMICIN
     Indication: ACUTE MYELOMONOCYTIC LEUKAEMIA
  7. LETERMOVIR [Suspect]
     Active Substance: LETERMOVIR
     Dosage: UNK
  8. VANCOMYCIN [Suspect]
     Active Substance: VANCOMYCIN
     Dosage: UNK
  9. POTASSIUM CHLORIDE. [Suspect]
     Active Substance: POTASSIUM CHLORIDE
     Dosage: UNK
  10. MITOXANTRONE HYDROCHLORIDE. [Suspect]
     Active Substance: MITOXANTRONE HYDROCHLORIDE
     Indication: ACUTE MYELOMONOCYTIC LEUKAEMIA
  11. CYCLOPHOSPHAMIDE. [Suspect]
     Active Substance: CYCLOPHOSPHAMIDE
     Indication: BONE MARROW CONDITIONING REGIMEN
     Dosage: UNK
  12. VALACICLOVIR HYDROCHLORIDE [Suspect]
     Active Substance: VALACYCLOVIR HYDROCHLORIDE
     Dosage: UNK
     Route: 048
  13. PROCHLORPERAZINE. [Suspect]
     Active Substance: PROCHLORPERAZINE
     Dosage: UNK
  14. MESNA. [Suspect]
     Active Substance: MESNA
     Dosage: UNK
  15. MAGNESIUM SULFATE. [Suspect]
     Active Substance: MAGNESIUM SULFATE
     Dosage: UNK
  16. OMEPRAZOLE. [Suspect]
     Active Substance: OMEPRAZOLE
     Dosage: UNK
     Route: 042
  17. VICCLOX [Suspect]
     Active Substance: ACYCLOVIR SODIUM
     Dosage: UNK
     Route: 065
  18. GEMTUZUMAB OZOGAMICIN [Suspect]
     Active Substance: GEMTUZUMAB OZOGAMICIN
     Indication: LEUKAEMIA RECURRENT
     Dosage: UNK
  19. CASPOFUNGIN ACETATE. [Suspect]
     Active Substance: CASPOFUNGIN ACETATE
     Dosage: UNK
  20. SULFAMETHOXAZOLE + TRIMETHOPRIM [Suspect]
     Active Substance: SULFAMETHOXAZOLE\TRIMETHOPRIM
     Dosage: UNK
  21. CYTARABINE. [Suspect]
     Active Substance: CYTARABINE
     Indication: ACUTE MYELOMONOCYTIC LEUKAEMIA
     Dosage: UNK
  22. FLUDARABINE PHOSPHATE. [Suspect]
     Active Substance: FLUDARABINE PHOSPHATE
     Indication: LEUKAEMIA RECURRENT
     Dosage: UNK
  23. DALTEPARIN SODIUM [Suspect]
     Active Substance: DALTEPARIN SODIUM
     Dosage: ONCE
     Route: 042
  24. LANSOPRAZOLE. [Suspect]
     Active Substance: LANSOPRAZOLE
     Dosage: UNK
  25. CARBAZOCHROME [Suspect]
     Active Substance: CARBAZOCHROME
     Dosage: UNK
  26. PENTAMIDINE ISETHIONATE. [Suspect]
     Active Substance: PENTAMIDINE ISETHIONATE
     Dosage: UNK
  27. DEXAMETHASONE. [Suspect]
     Active Substance: DEXAMETHASONE
     Dosage: UNK
  28. TRANEXAMIC ACID. [Suspect]
     Active Substance: TRANEXAMIC ACID
     Dosage: UNK
  29. METOCLOPRAMIDE. [Suspect]
     Active Substance: METOCLOPRAMIDE
     Dosage: UNK
  30. METHOTREXATE. [Suspect]
     Active Substance: METHOTREXATE
     Dosage: UNK
  31. PIPERACILLIN AND TAZOBACTAM [Suspect]
     Active Substance: PIPERACILLIN SODIUM\TAZOBACTAM SODIUM
     Dosage: UNK
  32. CLOSTRIDIUM BUTYRICUM [Suspect]
     Active Substance: CLOSTRIDIUM BUTYRICUM SPORES STRAIN M-55
     Dosage: UNK
  33. LENOGRASTIM [Suspect]
     Active Substance: LENOGRASTIM
     Dosage: UNK
  34. TACROLIMUS. [Suspect]
     Active Substance: TACROLIMUS
     Dosage: UNK
  35. LEVOFLOXACIN. [Suspect]
     Active Substance: LEVOFLOXACIN
     Dosage: UNK
  36. D?CHLORPHENIRAMINE MALEATE [Suspect]
     Active Substance: DEXCHLORPHENIRAMINE MALEATE
     Dosage: UNK
  37. SODIUM BICARBONATE. [Suspect]
     Active Substance: SODIUM BICARBONATE
     Dosage: UNK
  38. MEROPENEM. [Suspect]
     Active Substance: MEROPENEM
     Dosage: UNK
  39. BROTIZOLAM [Suspect]
     Active Substance: BROTIZOLAM
     Dosage: UNK
  40. FENTANYL. [Suspect]
     Active Substance: FENTANYL
     Dosage: UNK
  41. LOPERAMIDE [Suspect]
     Active Substance: LOPERAMIDE
     Dosage: UNK
  42. MOSAPRIDE [Suspect]
     Active Substance: MOSAPRIDE
     Dosage: UNK
  43. URSODEOXYCHOLIC ACID [Suspect]
     Active Substance: URSODIOL
     Dosage: UNK
  44. DOMPERIDONE [Suspect]
     Active Substance: DOMPERIDONE
     Dosage: UNK
  45. HYDROXYZINE [Suspect]
     Active Substance: HYDROXYZINE HYDROCHLORIDE
     Dosage: UNK
  46. FLUDARABINE PHOSPHATE. [Suspect]
     Active Substance: FLUDARABINE PHOSPHATE
     Indication: ACUTE MYELOMONOCYTIC LEUKAEMIA
  47. MITOXANTRONE HYDROCHLORIDE. [Suspect]
     Active Substance: MITOXANTRONE HYDROCHLORIDE
     Indication: LEUKAEMIA RECURRENT
     Dosage: UNK
  48. VONOPRAZAN [Suspect]
     Active Substance: VONOPRAZAN
     Dosage: UNK
  49. HYDROCORTISONE. [Suspect]
     Active Substance: HYDROCORTISONE
     Dosage: UNK
  50. ITRACONAZOLE. [Suspect]
     Active Substance: ITRACONAZOLE
     Dosage: UNK
  51. TEICOPLANIN [Suspect]
     Active Substance: TEICOPLANIN
     Dosage: UNK
  52. APREPITANT. [Suspect]
     Active Substance: APREPITANT
     Dosage: UNK
  53. NICARDIPINE [Suspect]
     Active Substance: NICARDIPINE
     Dosage: UNK

REACTIONS (7)
  - Erosive oesophagitis [Unknown]
  - Thrombocytopenia [Unknown]
  - Oesophageal haemorrhage [Unknown]
  - Anaemia [Unknown]
  - General physical health deterioration [Unknown]
  - Haematemesis [Unknown]
  - Haematoma [Unknown]
